FAERS Safety Report 19433401 (Version 1)
Quarter: 2021Q2

REPORT INFORMATION
  Report Type: Spontaneous
  Country: CA (occurrence: CA)
  Receive Date: 20210618
  Receipt Date: 20210618
  Transmission Date: 20210717
  Serious: Yes (Other)
  Sender: FDA-Public Use
  Company Number: CA-AUROBINDO-AUR-APL-2021-024819

PATIENT
  Age: 18 Year
  Sex: Female
  Weight: 55 kg

DRUGS (3)
  1. SERTRALINE [Suspect]
     Active Substance: SERTRALINE HYDROCHLORIDE
     Dosage: 150 MILLIGRAM
     Route: 065
  2. SERTRALINE [Suspect]
     Active Substance: SERTRALINE HYDROCHLORIDE
     Indication: PRODUCT USED FOR UNKNOWN INDICATION
     Dosage: 100 MILLIGRAM, TWO TIMES A DAY
     Route: 065
  3. SERTRALINE [Suspect]
     Active Substance: SERTRALINE HYDROCHLORIDE
     Indication: PRODUCT USED FOR UNKNOWN INDICATION
     Dosage: 50 MILLIGRAM
     Route: 065

REACTIONS (9)
  - Amnesia [Not Recovered/Not Resolved]
  - Back pain [Not Recovered/Not Resolved]
  - Dizziness [Not Recovered/Not Resolved]
  - Tremor [Not Recovered/Not Resolved]
  - Abdominal pain [Not Recovered/Not Resolved]
  - Hot flush [Not Recovered/Not Resolved]
  - Decreased appetite [Not Recovered/Not Resolved]
  - Hallucination, auditory [Not Recovered/Not Resolved]
  - Heart rate increased [Not Recovered/Not Resolved]
